FAERS Safety Report 12974667 (Version 4)
Quarter: 2017Q3

REPORT INFORMATION
  Report Type: Spontaneous
  Country: DK (occurrence: DK)
  Receive Date: 20161125
  Receipt Date: 20170816
  Transmission Date: 20171127
  Serious: Yes (Hospitalization, Other)
  Sender: FDA-Public Use
  Company Number: DK-ALEXION PHARMACEUTICALS INC-A201609108

PATIENT
  Age: 12 Year
  Sex: Male

DRUGS (3)
  1. SOLIRIS [Suspect]
     Active Substance: ECULIZUMAB
     Indication: ESCHERICHIA TEST POSITIVE
     Dosage: 600 MG, UNK
     Route: 042
  2. SOLIRIS [Suspect]
     Active Substance: ECULIZUMAB
     Indication: OFF LABEL USE
  3. SOLIRIS [Suspect]
     Active Substance: ECULIZUMAB
     Indication: HAEMOLYTIC URAEMIC SYNDROME
     Dosage: 900 UNK, UNK
     Route: 042

REACTIONS (12)
  - Renal failure [Unknown]
  - Respiratory failure [Unknown]
  - Quadriplegia [Unknown]
  - Haemorrhage [Unknown]
  - Off label use [Unknown]
  - Central nervous system lesion [Unknown]
  - Complement factor C3 decreased [Unknown]
  - Cognitive disorder [Unknown]
  - Cardiac failure [Unknown]
  - Haemolysis [Unknown]
  - Mucosal haemorrhage [Unknown]
  - Electroencephalogram abnormal [Unknown]

NARRATIVE: CASE EVENT DATE: 201611
